FAERS Safety Report 17312589 (Version 1)
Quarter: 2020Q1

REPORT INFORMATION
  Report Type: Report from Study
  Country: US (occurrence: US)
  Receive Date: 20200123
  Receipt Date: 20200123
  Transmission Date: 20200409
  Serious: Yes (Hospitalization)
  Sender: FDA-Public Use
  Company Number: NVSC2020US013005

PATIENT
  Sex: Female

DRUGS (2)
  1. KINERET [Concomitant]
     Active Substance: ANAKINRA
     Indication: PRODUCT USED FOR UNKNOWN INDICATION
     Dosage: UNK
     Route: 065
  2. ILARIS [Suspect]
     Active Substance: CANAKINUMAB
     Indication: AUTOINFLAMMATORY DISEASE
     Dosage: 200 MG (Q21DAYS)
     Route: 058
     Dates: start: 20150401

REACTIONS (2)
  - Condition aggravated [Unknown]
  - Autoinflammatory disease [Unknown]
